FAERS Safety Report 12135326 (Version 1)
Quarter: 2016Q1

REPORT INFORMATION
  Report Type: Spontaneous
  Country: FR (occurrence: FR)
  Receive Date: 20160302
  Receipt Date: 20160302
  Transmission Date: 20160526
  Serious: Yes (Hospitalization, Other)
  Sender: FDA-Public Use
  Company Number: FR-009507513-1602FRA013236

PATIENT
  Sex: Male

DRUGS (3)
  1. ORGARAN [Suspect]
     Active Substance: DANAPAROID SODIUM
     Indication: THROMBOSIS PROPHYLAXIS
     Dosage: 750 IU/0.6 ML SOLUTION FOR INJECTION, QD
     Route: 042
     Dates: start: 20151217, end: 20160114
  2. ORGARAN [Suspect]
     Active Substance: DANAPAROID SODIUM
     Dosage: 750 IU/0.6 ML SOLUTION FOR INJECTION, QD
     Route: 042
     Dates: start: 20160123, end: 20160129
  3. ORGARAN [Suspect]
     Active Substance: DANAPAROID SODIUM
     Dosage: 750 IU/0.6 ML SOLUTION FOR INJECTION, QD
     Route: 042
     Dates: start: 2016, end: 20160206

REACTIONS (3)
  - Haemoptysis [Recovered/Resolved]
  - Stoma site haemorrhage [Recovered/Resolved]
  - Sepsis [Unknown]
